FAERS Safety Report 16573764 (Version 1)
Quarter: 2019Q3

REPORT INFORMATION
  Report Type: Spontaneous
  Country: US (occurrence: US)
  Receive Date: 20190715
  Receipt Date: 20190715
  Transmission Date: 20191004
  Serious: No
  Sender: FDA-Public Use
  Company Number: US-CELGENEUS-USA-20190702444

PATIENT
  Age: 48 Year
  Sex: Female

DRUGS (12)
  1. OTEZLA [Suspect]
     Active Substance: APREMILAST
     Indication: RASH
     Dosage: 60 MILLIGRAM
     Route: 048
     Dates: start: 20190601
  2. COSENTYX [Concomitant]
     Active Substance: SECUKINUMAB
     Indication: SYSTEMIC LUPUS ERYTHEMATOSUS
  3. OTEZLA [Suspect]
     Active Substance: APREMILAST
     Indication: CONNECTIVE TISSUE DISORDER
  4. COSENTYX [Concomitant]
     Active Substance: SECUKINUMAB
     Indication: RASH
     Route: 065
  5. COSENTYX [Concomitant]
     Active Substance: SECUKINUMAB
     Indication: OFF LABEL USE
  6. COSENTYX [Concomitant]
     Active Substance: SECUKINUMAB
     Indication: CONNECTIVE TISSUE DISORDER
  7. OTEZLA [Suspect]
     Active Substance: APREMILAST
     Indication: ULCER
  8. COSENTYX [Concomitant]
     Active Substance: SECUKINUMAB
     Indication: ULCER
  9. OTEZLA [Suspect]
     Active Substance: APREMILAST
     Indication: SYSTEMIC LUPUS ERYTHEMATOSUS
  10. OTEZLA [Suspect]
     Active Substance: APREMILAST
     Indication: ANKYLOSING SPONDYLITIS
  11. OTEZLA [Suspect]
     Active Substance: APREMILAST
     Indication: OFF LABEL USE
  12. COSENTYX [Concomitant]
     Active Substance: SECUKINUMAB
     Indication: ANKYLOSING SPONDYLITIS

REACTIONS (1)
  - Adverse event [Unknown]

NARRATIVE: CASE EVENT DATE: 20190705
